FAERS Safety Report 6345059-X (Version None)
Quarter: 2009Q3

REPORT INFORMATION
  Report Type: 
  Country: None (occurrence: None)
  Receive Date: 20090909
  Receipt Date: 20070507
  Transmission Date: 20100115
  Serious: Yes (Other)
  Sender: FDA-Public Use
  Company Number: US-ASTRAZENECA-2006UW13930

PATIENT
  Age: 19472 Day
  Sex: Male
  Weight: 86.2 kg

DRUGS (18)
  1. SEROQUEL [Suspect]
     Indication: SCHIZOPHRENIA
     Route: 048
     Dates: start: 20020101, end: 20040101
  2. SEROQUEL [Suspect]
     Dosage: 200 MG TAKE 1 OR 2 TS ORAL QHS
     Route: 048
     Dates: start: 20021118
  3. ZOCOR [Concomitant]
     Dates: start: 20061107
  4. BENADRYL [Concomitant]
  5. TOPROL-XL [Concomitant]
     Route: 048
  6. TOPROL-XL [Concomitant]
     Dates: start: 20061107
  7. ABILIFY [Concomitant]
     Dates: start: 20030101
  8. TRIFLUOPERAZINE HCL [Concomitant]
     Dates: start: 20061107
  9. HALDOL [Concomitant]
     Dates: start: 19860101
  10. NAVANE [Concomitant]
  11. STELAZINE [Concomitant]
  12. LIBRIUM [Concomitant]
     Dates: start: 19840101
  13. ZYPREXA [Concomitant]
     Dosage: 5MG - 15MG
     Dates: start: 20000628, end: 20040101
  14. GLIPIZIDE [Concomitant]
     Dates: start: 20061107
  15. POTASSIUM CHLORIDE [Concomitant]
     Dates: start: 20061107
  16. TRIAMTERENE [Concomitant]
     Dates: start: 20061107
  17. NAPROSYN [Concomitant]
     Dates: start: 20061107
  18. ZANTAC [Concomitant]
     Dates: start: 20061107

REACTIONS (8)
  - CHOLECYSTECTOMY [None]
  - CHOLECYSTITIS CHRONIC [None]
  - DIABETES MELLITUS [None]
  - DYSPNOEA [None]
  - FALL [None]
  - HALLUCINATION [None]
  - INSOMNIA [None]
  - PANCREATITIS ACUTE [None]
